FAERS Safety Report 6216049-2 (Version None)
Quarter: 2009Q2

REPORT INFORMATION
  Report Type: 
  Country: None (occurrence: None)
  Receive Date: 20090605
  Receipt Date: 20090603
  Transmission Date: 20091009
  Serious: Yes (Hospitalization, Other)
  Sender: FDA-Public Use
  Company Number: PHHY2009SN20417

PATIENT
  Age: 33 Year
  Sex: Female

DRUGS (1)
  1. BROMOCRIPTINE MESYLATE [Suspect]
     Indication: HYPERPROLACTINAEMIA

REACTIONS (15)
  - ABORTION SPONTANEOUS [None]
  - BREAST DISCOLOURATION [None]
  - BREAST ENLARGEMENT [None]
  - BREAST HYPERPLASIA [None]
  - BREAST INFLAMMATION [None]
  - BREAST PAIN [None]
  - BREAST SWELLING [None]
  - DRUG EXPOSURE DURING PREGNANCY [None]
  - DRUG INEFFECTIVE [None]
  - ECCHYMOSIS [None]
  - HYPERPROLACTINAEMIA [None]
  - MASTECTOMY [None]
  - MASTITIS [None]
  - PEAU D'ORANGE [None]
  - PLASTIC SURGERY [None]
